FAERS Safety Report 15412605 (Version 3)
Quarter: 2018Q4

REPORT INFORMATION
  Report Type: Spontaneous
  Country: FR (occurrence: FR)
  Receive Date: 20180921
  Receipt Date: 20181004
  Transmission Date: 20190204
  Serious: Yes (Death, Life-Threatening, Hospitalization)
  Sender: FDA-Public Use
  Company Number: FR-PFIZER INC-2018381036

PATIENT
  Age: 38 Year
  Sex: Male

DRUGS (8)
  1. MIDAZOLAM HYDROCHLORIDE. [Concomitant]
     Active Substance: MIDAZOLAM HYDROCHLORIDE
  2. ETOMIDATE HCL [Concomitant]
     Dosage: 40 MG, UNK
  3. LEVOTHYROXINE. [Suspect]
     Active Substance: LEVOTHYROXINE
     Indication: THYROID DISORDER
     Dosage: 75 MG
  4. SUFENTANIL [Concomitant]
     Active Substance: SUFENTANIL
  5. NOREPINEPHRINE BITARTRATE. [Suspect]
     Active Substance: NOREPINEPHRINE BITARTRATE
     Indication: CARDIO-RESPIRATORY ARREST
     Dosage: UNK
     Dates: start: 201606, end: 201606
  6. SUXAMETHONIUM [Suspect]
     Active Substance: SUCCINYLCHOLINE
     Dosage: 100 MG, UNK
     Dates: start: 201606, end: 201606
  7. CEFTRIAXONE. [Concomitant]
     Active Substance: CEFTRIAXONE
     Indication: ARRHYTHMIA
     Dosage: 2 G, UNK (INJECTION)
  8. EPINEPHRINE. [Suspect]
     Active Substance: EPINEPHRINE
     Indication: CARDIO-RESPIRATORY ARREST
     Dosage: 5 MG, UNK
     Dates: start: 201606, end: 201606

REACTIONS (15)
  - Circulatory collapse [Fatal]
  - Respiratory failure [Fatal]
  - Acute kidney injury [Fatal]
  - Multiple organ dysfunction syndrome [Fatal]
  - Heat stroke [Fatal]
  - Shock [Fatal]
  - Electrocardiogram ST segment elevation [Fatal]
  - Rhabdomyolysis [Fatal]
  - Supraventricular tachycardia [Fatal]
  - Cardio-respiratory arrest [Fatal]
  - Hyperkalaemia [Fatal]
  - Disseminated intravascular coagulation [Fatal]
  - Nervous system disorder [Fatal]
  - Lactic acidosis [Fatal]
  - Metabolic acidosis [Fatal]

NARRATIVE: CASE EVENT DATE: 201606
